FAERS Safety Report 7009449-4 (Version None)
Quarter: 2010Q3

REPORT INFORMATION
  Report Type: 
  Country: None (occurrence: None)
  Receive Date: 20100923
  Receipt Date: 20100915
  Transmission Date: 20110219
  Serious: Yes (Other)
  Sender: FDA-Public Use
  Company Number: US-AMGEN-KDL438726

PATIENT
  Sex: Female

DRUGS (1)
  1. ENBREL [Suspect]
     Indication: RHEUMATOID ARTHRITIS
     Route: 058
     Dates: start: 20100401

REACTIONS (5)
  - BURNS SECOND DEGREE [None]
  - BURNS THIRD DEGREE [None]
  - COUGH [None]
  - FALL [None]
  - RIB FRACTURE [None]
